FAERS Safety Report 4646206-8 (Version None)
Quarter: 2005Q2

REPORT INFORMATION
  Report Type: 
  Country: None (occurrence: None)
  Receive Date: 20050422
  Receipt Date: 20050411
  Transmission Date: 20051028
  Serious: No
  Sender: FDA-Public Use
  Company Number: 05P-087-0297061-00

PATIENT
  Age: 13 Year
  Sex: Female

DRUGS (1)
  1. SYNTHROID [Suspect]
     Indication: PRIMARY HYPOTHYROIDISM
     Dosage: 150 MCG, 50 M CG

REACTIONS (5)
  - FATIGUE [None]
  - HEPATIC FUNCTION ABNORMAL [None]
  - PYREXIA [None]
  - THYROXINE INCREASED [None]
  - TRI-IODOTHYRONINE INCREASED [None]
